FAERS Safety Report 7728844-9 (Version None)
Quarter: 2011Q3

REPORT INFORMATION
  Report Type: 
  Country: None (occurrence: None)
  Receive Date: 20110831
  Receipt Date: 20110831
  Transmission Date: 20111222
  Serious: Yes (Death, Hospitalization, Disabling)
  Sender: FDA-Public Use
  Company Number: None

PATIENT
  Age: 74 Year
  Sex: Male
  Weight: 81.6475 kg

DRUGS (2)
  1. VELCADE [Suspect]
     Indication: AMYLOIDOSIS
     Dosage: TWICE WKLY
     Dates: start: 20100731, end: 20100913
  2. VELCADE [Suspect]
     Indication: RENAL DISORDER
     Dosage: TWICE WKLY
     Dates: start: 20100731, end: 20100913

REACTIONS (1)
  - STEVENS-JOHNSON SYNDROME [None]
